FAERS Safety Report 7225701-1 (Version None)
Quarter: 2011Q1

REPORT INFORMATION
  Report Type: 
  Country: None (occurrence: None)
  Receive Date: 20110113
  Receipt Date: 20110107
  Transmission Date: 20110831
  Serious: Yes (Other)
  Sender: FDA-Public Use
  Company Number: CN-GENZYME-CERZ-1001732

PATIENT
  Sex: Male
  Weight: 18.5 kg

DRUGS (2)
  1. CEREZYME [Suspect]
     Indication: GAUCHER'S DISEASE
     Dosage: 43 U/KG, Q4W
     Route: 042
     Dates: start: 20090816
  2. CEREZYME [Suspect]
     Dosage: 50 U/KG, Q2W
     Route: 042
     Dates: start: 20070901, end: 20090801

REACTIONS (3)
  - HENOCH-SCHONLEIN PURPURA [None]
  - PAIN IN EXTREMITY [None]
  - STRABISMUS [None]
